FAERS Safety Report 8781789 (Version 2)
Quarter: 2012Q4

REPORT INFORMATION
  Report Type: 
  Country: US (occurrence: US)
  Receive Date: 20120913
  Receipt Date: 20120924
  Transmission Date: 20130627
  Serious: Yes (Hospitalization)
  Sender: FDA-Public Use
  Company Number: US-NAPPMUNDI-USA-2012-0092742

PATIENT
  Sex: Female

DRUGS (2)
  1. BUTRANS [Suspect]
     Indication: ANALGESIC THERAPY
     Dosage: 10 mcg/hr, UNK
     Route: 062
     Dates: start: 20120814
  2. BUTRANS [Suspect]
     Dosage: 5 mcg/hr, weekly
     Route: 062
     Dates: start: 20120628, end: 20120814

REACTIONS (2)
  - Oesophageal perforation [Not Recovered/Not Resolved]
  - Pain [Unknown]
